FAERS Safety Report 7773981-6 (Version None)
Quarter: 2011Q3

REPORT INFORMATION
  Report Type: 
  Country: None (occurrence: None)
  Receive Date: 20110920
  Receipt Date: 20110906
  Transmission Date: 20111222
  Serious: Yes (Other)
  Sender: FDA-Public Use
  Company Number: B0747286A

PATIENT

DRUGS (2)
  1. LAMOTRIGINE [Suspect]
     Indication: SCHIZOPHRENIA
  2. CLOZAPINE [Concomitant]

REACTIONS (6)
  - DELUSION [None]
  - INSOMNIA [None]
  - SUICIDAL IDEATION [None]
  - HALLUCINATION [None]
  - ANXIETY [None]
  - AFFECTIVE DISORDER [None]
